FAERS Safety Report 20422213 (Version 1)
Quarter: 2022Q1

REPORT INFORMATION
  Report Type: Spontaneous
  Country: IE (occurrence: IE)
  Receive Date: 20220203
  Receipt Date: 20220203
  Transmission Date: 20220423
  Serious: Yes (Other)
  Sender: FDA-Public Use
  Company Number: None

PATIENT
  Age: 64 Year
  Sex: Female

DRUGS (3)
  1. EDOXABAN [Suspect]
     Active Substance: EDOXABAN
     Indication: Embolism venous
     Dosage: UNK
  2. VAXZEVRIA [Suspect]
     Active Substance: AZD-1222
     Indication: COVID-19 immunisation
     Dosage: UNK
  3. NEULASTA [Concomitant]
     Active Substance: PEGFILGRASTIM
     Indication: Product used for unknown indication
     Dosage: UNK

REACTIONS (7)
  - Oedema peripheral [Unknown]
  - Dyspnoea [Unknown]
  - Thrombocytopenia [Unknown]
  - Rectal haemorrhage [Unknown]
  - Anaemia [Unknown]
  - Haemoptysis [Unknown]
  - Epistaxis [Unknown]

NARRATIVE: CASE EVENT DATE: 20210318
